FAERS Safety Report 5148797-X (Version None)
Quarter: 2006Q4

REPORT INFORMATION
  Report Type: 
  Country: None (occurrence: None)
  Receive Date: 20061107
  Receipt Date: 20061030
  Transmission Date: 20070319
  Serious: Yes (Other)
  Sender: FDA-Public Use
  Company Number: 2006SP005402

PATIENT
  Age: 53 Year
  Sex: Male
  Weight: 83.4619 kg

DRUGS (4)
  1. PEG-INTRON [Suspect]
     Indication: HEPATITIS C
     Dosage: SC; 150 MCG; SC
     Route: 058
     Dates: start: 20060811, end: 20061017
  2. PEG-INTRON [Suspect]
     Indication: HEPATITIS C
     Dosage: SC; 150 MCG; SC
     Route: 058
     Dates: start: 20061027
  3. REBETOL [Suspect]
     Indication: HEPATITIS C
     Dosage: 1000 MG; QD; PO; 600 MG;QD;PO
     Route: 048
     Dates: start: 20060811, end: 20061017
  4. REBETOL [Suspect]
     Indication: HEPATITIS C
     Dosage: 1000 MG; QD; PO; 600 MG;QD;PO
     Route: 048
     Dates: start: 20061027

REACTIONS (14)
  - ANXIETY [None]
  - DEHYDRATION [None]
  - DEPRESSION [None]
  - DIZZINESS [None]
  - DRUG INEFFECTIVE [None]
  - DYSGEUSIA [None]
  - FATIGUE [None]
  - FEAR [None]
  - FEELING ABNORMAL [None]
  - INJECTION SITE RASH [None]
  - NAUSEA [None]
  - PAROSMIA [None]
  - SLEEP DISORDER [None]
  - WHITE BLOOD CELL COUNT DECREASED [None]
